FAERS Safety Report 21087178 (Version 2)
Quarter: 2022Q3

REPORT INFORMATION
  Report Type: Spontaneous
  Country: US (occurrence: US)
  Receive Date: 20220715
  Receipt Date: 20220815
  Transmission Date: 20221026
  Serious: No
  Sender: FDA-Public Use
  Company Number: US-ALK-ABELLO A/S-2022AA002082

PATIENT

DRUGS (1)
  1. GRASTEK [Suspect]
     Active Substance: PHLEUM PRATENSE POLLEN
     Indication: Product used for unknown indication
     Dosage: UNK
     Route: 060
     Dates: start: 20210305

REACTIONS (1)
  - Drug ineffective [Unknown]
